FAERS Safety Report 6314435-3 (Version None)
Quarter: 2009Q3

REPORT INFORMATION
  Report Type: 
  Country: None (occurrence: None)
  Receive Date: 20090817
  Receipt Date: 20090817
  Transmission Date: 20100115
  Serious: Yes (Hospitalization, Other)
  Sender: FDA-Public Use
  Company Number: None

PATIENT
  Age: 65 Year
  Sex: Female
  Weight: 62.3 kg

DRUGS (1)
  1. RECLAST [Suspect]
     Indication: OSTEOPENIA
     Dosage: 5 MG YEARLY INTRAVENOUS DRIP
     Route: 041
     Dates: start: 20090116

REACTIONS (4)
  - BACK PAIN [None]
  - FALL [None]
  - MYOCARDIAL INFARCTION [None]
  - PAIN IN EXTREMITY [None]
